FAERS Safety Report 6235011-7 (Version None)
Quarter: 2009Q2

REPORT INFORMATION
  Report Type: 
  Country: None (occurrence: None)
  Receive Date: 20090618
  Receipt Date: 20090605
  Transmission Date: 20091009
  Serious: Yes (Hospitalization)
  Sender: FDA-Public Use
  Company Number: US-ELI_LILLY_AND_COMPANY-US200906001784

PATIENT
  Sex: Female

DRUGS (12)
  1. CYMBALTA [Suspect]
     Indication: NEUROPATHY PERIPHERAL
     Dosage: 1 D/F, UNK
     Dates: end: 20050101
  2. INTERFERON BETA 1A [Concomitant]
     Indication: MULTIPLE SCLEROSIS
     Dosage: 44 UG, 3/W
     Dates: start: 20020101, end: 20080101
  3. ELAVIL [Concomitant]
     Indication: NEUROPATHY PERIPHERAL
  4. BACLOFEN [Concomitant]
     Indication: MUSCLE SPASMS
  5. LAMICTAL [Concomitant]
     Indication: COMPLEX REGIONAL PAIN SYNDROME
  6. TEGRETOL [Concomitant]
     Indication: COMPLEX REGIONAL PAIN SYNDROME
  7. TEMAZEPAM [Concomitant]
     Indication: INSOMNIA
  8. FIORINAL [Concomitant]
     Indication: PAIN
  9. PRILOSEC [Concomitant]
     Indication: GASTROOESOPHAGEAL REFLUX DISEASE
  10. OXYBUTYNIN [Concomitant]
     Indication: BLADDER DISORDER
  11. IMMUNE GLOBULIN NOS [Concomitant]
     Indication: AUTOIMMUNE DISORDER
     Route: 042
  12. ANTIHYPERTENSIVES [Concomitant]
     Indication: BLOOD PRESSURE INCREASED

REACTIONS (5)
  - CONVULSION [None]
  - HYPERTENSION [None]
  - MUSCLE SPASMS [None]
  - MUSCLE TWITCHING [None]
  - OFF LABEL USE [None]
